FAERS Safety Report 9575131 (Version 3)
Quarter: 2014Q2

REPORT INFORMATION
  Report Type: Report from Study
  Country: US (occurrence: US)
  Receive Date: 20131001
  Receipt Date: 20140610
  Transmission Date: 20141212
  Serious: Yes (Hospitalization)
  Sender: FDA-Public Use
  Company Number: US-ACTELION-A-NJ2013-88109

PATIENT
  Age: 77 Year
  Sex: Female

DRUGS (14)
  1. TRACLEER [Suspect]
     Indication: PULMONARY ARTERIAL HYPERTENSION
     Dosage: 125 MG, BID
     Route: 048
     Dates: start: 2010
  2. TRACLEER [Suspect]
     Dosage: 62.5 MG, BID
     Route: 048
     Dates: start: 2010
  3. JANUVIA [Concomitant]
     Dosage: 50 MG, UNK
     Dates: start: 2009
  4. PRADAXA [Concomitant]
     Dosage: 150 MG, BID
     Dates: start: 2010
  5. DIGOXIN [Concomitant]
     Dosage: 125 MG, QD
     Dates: start: 2010
  6. IMDUR [Concomitant]
     Dosage: 30 MG, UNK
  7. TERAZOSIN [Concomitant]
     Dosage: 1 MG, QD
  8. FENOFIBRATE [Concomitant]
     Dosage: 134 MG, QD
     Dates: start: 2012
  9. LASIX [Concomitant]
     Dosage: 40 MG, QD
  10. MAGNESIUM [Concomitant]
     Dosage: 400 MG, QD
  11. METFORMIN [Concomitant]
     Dosage: 1000 MG, BID
     Dates: start: 2010
  12. BENICAR [Concomitant]
     Dosage: 40 MG, QD
     Dates: start: 2009
  13. PRILOSEC [Concomitant]
     Dosage: 40 MG, QD
     Dates: start: 2009
  14. SIMVASTATIN [Concomitant]
     Dosage: 10 MG, QD
     Dates: start: 2009

REACTIONS (6)
  - Hip arthroplasty [Recovered/Resolved]
  - Dizziness [Recovered/Resolved]
  - Arthritis [Not Recovered/Not Resolved]
  - Musculoskeletal discomfort [Not Recovered/Not Resolved]
  - Blood pressure increased [Recovered/Resolved]
  - Cardiac disorder [Unknown]
